FAERS Safety Report 22638284 (Version 1)
Quarter: 2023Q2

REPORT INFORMATION
  Report Type: Report from Study
  Country: IT (occurrence: IT)
  Receive Date: 20230626
  Receipt Date: 20230626
  Transmission Date: 20230722
  Serious: Yes (Other)
  Sender: FDA-Public Use
  Company Number: None

PATIENT
  Age: 17 Year
  Sex: Male
  Weight: 78 kg

DRUGS (2)
  1. ETOPOSIDE [Suspect]
     Active Substance: ETOPOSIDE
     Indication: Ewing^s sarcoma
     Dosage: ETOPOSIDE 300 MG (150 MG/M2/DAY) IV DAYS 1-3,
     Route: 065
     Dates: start: 20210629, end: 20210701
  2. IFOSFAMIDE [Suspect]
     Active Substance: IFOSFAMIDE
     Indication: Ewing^s sarcoma
     Dosage: IFOSFAMIDE 6000MG (3000MG/M2) IV DAY 1-3; MESNA EQUIDOSE,
     Route: 065
     Dates: start: 20210629, end: 20210701

REACTIONS (1)
  - Leukopenia [Recovered/Resolved]

NARRATIVE: CASE EVENT DATE: 20210706
